FAERS Safety Report 20788940 (Version 1)
Quarter: 2022Q2

REPORT INFORMATION
  Report Type: Spontaneous
  Country: US (occurrence: None)
  Receive Date: 20220504
  Receipt Date: 20220504
  Transmission Date: 20220721
  Serious: No
  Sender: FDA-Public Use
  Company Number: None

PATIENT
  Age: 74 Year
  Sex: Male
  Weight: 85.5 kg

DRUGS (14)
  1. CARVEDILOL [Suspect]
     Active Substance: CARVEDILOL
     Indication: Hypertension
     Dosage: FREQUENCY : TWICE A DAY;?
     Route: 048
     Dates: start: 20220103, end: 20220327
  2. METOPROLOL [Concomitant]
     Active Substance: METOPROLOL
  3. ELIQUIS [Concomitant]
     Active Substance: APIXABAN
  4. benazipril [Concomitant]
  5. AMLODIPINE BESYLATE [Concomitant]
     Active Substance: AMLODIPINE BESYLATE
  6. LASIX [Concomitant]
     Active Substance: FUROSEMIDE
  7. ASCORBIC ACID [Concomitant]
     Active Substance: ASCORBIC ACID
  8. VITAMINS D3 [Concomitant]
  9. Cal-mag-zinc [Concomitant]
  10. FLAX SEED [Concomitant]
     Active Substance: FLAX SEED
  11. ACETYLCARNITINE [Concomitant]
     Active Substance: ACETYLCARNITINE
  12. CRATAEGUS LAEVIGATA FRUIT [Concomitant]
     Active Substance: CRATAEGUS LAEVIGATA FRUIT
  13. DIETARY SUPPLEMENT [Concomitant]
     Active Substance: DIETARY SUPPLEMENT
  14. other herbal formulas [Concomitant]

REACTIONS (8)
  - Dyspnoea [None]
  - Fatigue [None]
  - Insomnia [None]
  - Pulmonary congestion [None]
  - Atrial fibrillation [None]
  - Ejection fraction decreased [None]
  - Wheezing [None]
  - Drug ineffective [None]

NARRATIVE: CASE EVENT DATE: 20220113
